FAERS Safety Report 10692516 (Version 2)
Quarter: 2015Q1

REPORT INFORMATION
  Report Type: Spontaneous
  Country: US (occurrence: US)
  Receive Date: 20150106
  Receipt Date: 20150303
  Transmission Date: 20150720
  Serious: Yes (Disabling, Other)
  Sender: FDA-Public Use
  Company Number: US-PFIZER INC-2014363186

PATIENT
  Age: 46 Year
  Sex: Male

DRUGS (1)
  1. LATANOPROST. [Suspect]
     Active Substance: LATANOPROST
     Indication: GLAUCOMA
     Dosage: 1 DROP IN EACH EYE DAILY AT BEFORE BEDTIME
     Route: 047
     Dates: end: 201501

REACTIONS (3)
  - Eye irritation [Not Recovered/Not Resolved]
  - Glaucoma [Unknown]
  - Disease progression [Unknown]

NARRATIVE: CASE EVENT DATE: 2014
